FAERS Safety Report 6708341-X (Version None)
Quarter: 2010Q2

REPORT INFORMATION
  Report Type: 
  Country: None (occurrence: None)
  Receive Date: 20100503
  Receipt Date: 20091109
  Transmission Date: 20101027
  Serious: No
  Sender: FDA-Public Use
  Company Number: US-ASTRAZENECA-2009SE25353

PATIENT
  Sex: Female

DRUGS (6)
  1. NEXIUM [Suspect]
     Route: 048
  2. ZANTAC 300 [Concomitant]
  3. PRILOSEC [Concomitant]
  4. TAGAMET [Concomitant]
  5. OTHER O-T-C [Concomitant]
  6. PEPTO [Concomitant]

REACTIONS (5)
  - DRUG DOSE OMISSION [None]
  - GASTROOESOPHAGEAL REFLUX DISEASE [None]
  - HIATUS HERNIA [None]
  - NEPHROLITHIASIS [None]
  - POLYP [None]
